FAERS Safety Report 5967984-1 (Version None)
Quarter: 2008Q4

REPORT INFORMATION
  Report Type: 
  Country: None (occurrence: None)
  Receive Date: 20081121
  Receipt Date: 20081111
  Transmission Date: 20090506
  Serious: Yes (Hospitalization, Other)
  Sender: FDA-Public Use
  Company Number: 2008-04298

PATIENT
  Age: 58 Year
  Sex: Male
  Weight: 87.1 kg

DRUGS (7)
  1. VELCADE [Suspect]
     Indication: MULTIPLE MYELOMA
  2. MELPHALAN(MELPHALAN) VIAL [Suspect]
     Indication: MULTIPLE MYELOMA
  3. ACETAMINOPHEN [Concomitant]
  4. TRAMADOL HCL [Concomitant]
  5. VALACYCLOVIR [Suspect]
  6. NATRIUMPICOSULFAT [Concomitant]
  7. MORPHINE [Concomitant]

REACTIONS (6)
  - ABSCESS [None]
  - ERYTHEMA [None]
  - NOCARDIOSIS [None]
  - OEDEMA PERIPHERAL [None]
  - PAIN [None]
  - PYREXIA [None]
